FAERS Safety Report 8144412-1 (Version None)
Quarter: 2012Q1

REPORT INFORMATION
  Report Type: 
  Country: None (occurrence: None)
  Receive Date: 20120217
  Receipt Date: 20120207
  Transmission Date: 20120608
  Serious: Yes (Hospitalization)
  Sender: FDA-Public Use
  Company Number: CH-JNJFOC-20120205018

PATIENT
  Sex: Female
  Weight: 62 kg

DRUGS (4)
  1. METHOTREXATE [Suspect]
     Indication: POLYARTHRITIS
     Route: 048
     Dates: end: 20120101
  2. REMICADE [Suspect]
     Indication: POLYARTHRITIS
     Route: 042
     Dates: start: 20020101, end: 20120101
  3. FOLIC ACID [Concomitant]
     Route: 065
  4. PREDNISONE [Suspect]
     Indication: POLYARTHRITIS
     Dosage: AS NEEDED DURING AN ACUTE ARTHRITIC EPISODE
     Route: 065
     Dates: end: 20120101

REACTIONS (1)
  - DISSEMINATED TUBERCULOSIS [None]
